FAERS Safety Report 14859052 (Version 3)
Quarter: 2020Q4

REPORT INFORMATION
  Report Type: Spontaneous
  Country: US (occurrence: US)
  Receive Date: 20180508
  Receipt Date: 20201218
  Transmission Date: 20210113
  Serious: Yes (Disabling)
  Sender: FDA-Public Use
  Company Number: US-TEVA-774735USA

PATIENT
  Age: 41 Year
  Sex: Female

DRUGS (20)
  1. DOCETAXEL SANOFI [Suspect]
     Active Substance: DOCETAXEL
     Dosage: DOSAGE: UNKNOWN, NUMBER OF CYCLES: 06, EVERY THREE WEEKS
     Route: 065
     Dates: start: 20131028, end: 20140210
  2. DOCETAXEL. [Suspect]
     Active Substance: DOCETAXEL
     Indication: BREAST CANCER FEMALE
     Dosage: DOSAGE: UNKNOWN, NUMBER OF CYCLES: 06, EVERY THREE WEEKS
     Route: 065
     Dates: start: 20131028, end: 20140210
  3. DOCETAXEL ACTAVIS [Suspect]
     Active Substance: DOCETAXEL
     Indication: BREAST CANCER FEMALE
     Dosage: DOSAGE: UNKNOWN, NUMBER OF CYCLES: 06, EVERY THREE WEEKS
     Route: 065
     Dates: start: 20131028, end: 20140210
  4. DOCETAXEL SAGENT [Suspect]
     Active Substance: DOCETAXEL
     Indication: BREAST CANCER FEMALE
     Dosage: DOSAGE: UNKNOWN, NUMBER OF CYCLES: 06, EVERY THREE WEEKS
     Route: 065
     Dates: start: 20131028, end: 20140210
  5. DOCETAXEL SUN [Suspect]
     Active Substance: DOCETAXEL
     Indication: BREAST CANCER FEMALE
     Dosage: DOSAGE: UNKNOWN, NUMBER OF CYCLES: 06, EVERY THREE WEEKS
     Route: 065
     Dates: start: 20131028, end: 20140210
  6. TAXOTERE [Suspect]
     Active Substance: DOCETAXEL
     Route: 065
  7. DOCETAXEL SANDOZ [Suspect]
     Active Substance: DOCETAXEL
     Indication: BREAST CANCER FEMALE
     Dosage: DOSAGE: UNKNOWN, NUMBER OF CYCLES: 06, EVERY THREE WEEKS
     Route: 065
     Dates: start: 20131028, end: 20140210
  8. TAXOTERE [Suspect]
     Active Substance: DOCETAXEL
     Indication: BREAST CANCER FEMALE
     Dosage: DOSAGE: UNKNOWN, NUMBER OF CYCLES: 06, EVERY THREE WEEKS
     Route: 065
     Dates: start: 20131028, end: 20140210
  9. HERCEPTIN [Concomitant]
     Active Substance: TRASTUZUMAB
     Indication: BREAST CANCER FEMALE
     Dosage: DOSAGE: UNKNOWN, NUMBER OF CYCLES: 06, EVERY THREE WEEKS
     Dates: start: 20131028, end: 20140210
  10. WELLBUTRIN [Concomitant]
     Active Substance: BUPROPION HYDROCHLORIDE
     Dates: start: 20170510
  11. DOCETAXEL HOSPIRA [Suspect]
     Active Substance: DOCETAXEL
     Indication: BREAST CANCER FEMALE
     Dosage: DOSAGE: UNKNOWN, NUMBER OF CYCLES: 06, EVERY THREE WEEKS
     Route: 065
     Dates: start: 20131028, end: 20140210
  12. TRIAMTERENE HCTZ [Concomitant]
     Active Substance: HYDROCHLOROTHIAZIDE\TRIAMTERENE
     Dates: start: 201008
  13. DOCETAXEL ACCORD [Suspect]
     Active Substance: DOCETAXEL
     Indication: BREAST CANCER FEMALE
     Dosage: DOSAGE: UNKNOWN, NUMBER OF CYCLES: 06, EVERY THREE WEEKS
     Route: 065
     Dates: start: 20131028, end: 20140210
  14. ATENOLOL. [Concomitant]
     Active Substance: ATENOLOL
     Dosage: DOSAGE: 25MG DAILY
     Dates: start: 201008
  15. GOSERELIN [Concomitant]
     Active Substance: GOSERELIN
     Dates: start: 20160311
  16. TAMOXIFEN [Concomitant]
     Active Substance: TAMOXIFEN
     Dates: start: 201405, end: 20150930
  17. DOCETAXEL PFIZER [Suspect]
     Active Substance: DOCETAXEL
     Indication: BREAST CANCER FEMALE
     Dosage: DOSAGE: UNKNOWN, NUMBER OF CYCLES: 06, EVERY THREE WEEKS
     Route: 065
     Dates: start: 20131028, end: 20140210
  18. PARAPLATIN [Concomitant]
     Active Substance: CARBOPLATIN
     Indication: BREAST CANCER FEMALE
     Dosage: DOSAGE: UNKNOWN, NUMBER OF CYCLES: 06, EVERY THREE WEEKS
     Dates: start: 20131028, end: 20140210
  19. DOCETAXEL SANOFI [Suspect]
     Active Substance: DOCETAXEL
     Indication: BREAST CANCER FEMALE
     Dosage: DOSAGE: UNKNOWN, NUMBER OF CYCLES: 06, EVERY THREE WEEKS
     Route: 065
     Dates: start: 20131028, end: 20140210
  20. FEMARA [Concomitant]
     Active Substance: LETROZOLE
     Dates: start: 20160408

REACTIONS (5)
  - Hair colour changes [Recovered/Resolved]
  - Alopecia [Recovered/Resolved]
  - Chest pain [Unknown]
  - Madarosis [Recovered/Resolved]
  - Hair texture abnormal [Recovered/Resolved]

NARRATIVE: CASE EVENT DATE: 20140810
